FAERS Safety Report 12081604 (Version 1)
Quarter: 2016Q1

REPORT INFORMATION
  Report Type: Spontaneous
  Country: PL (occurrence: PL)
  Receive Date: 20160216
  Receipt Date: 20160216
  Transmission Date: 20160526
  Serious: Yes (Other)
  Sender: FDA-Public Use
  Company Number: PHHY2016PL018007

PATIENT
  Age: 37 Year
  Sex: Female
  Weight: 53 kg

DRUGS (4)
  1. FLUOROURACILE [Suspect]
     Active Substance: FLUOROURACIL
     Dosage: 1836 MG, UNK
     Route: 040
     Dates: start: 20140908, end: 20141125
  2. IRINOTECAN [Suspect]
     Active Substance: IRINOTECAN
     Indication: PANCREATIC CARCINOMA
     Dosage: 275 MG, UNK
     Route: 042
     Dates: start: 20140908, end: 20141125
  3. OXALIPLATINE [Suspect]
     Active Substance: OXALIPLATIN
     Indication: PANCREATIC CARCINOMA
     Dosage: 130 MG, UNK
     Route: 042
     Dates: start: 20140908, end: 20141124
  4. FLUOROURACILE [Suspect]
     Active Substance: FLUOROURACIL
     Indication: PANCREATIC CARCINOMA
     Dosage: 612 MG, UNK
     Route: 040
     Dates: start: 20140908, end: 20141125

REACTIONS (1)
  - Agranulocytosis [Recovering/Resolving]

NARRATIVE: CASE EVENT DATE: 20141208
